FAERS Safety Report 9828623 (Version 2)
Quarter: 2014Q1

REPORT INFORMATION
  Report Type: Report from Study
  Country: US (occurrence: US)
  Receive Date: 20140117
  Receipt Date: 20140130
  Transmission Date: 20141002
  Serious: Yes (Death, Life-Threatening)
  Sender: FDA-Public Use
  Company Number: US-US-EMD SERONO, INC.-7262975

PATIENT
  Age: 68 Year
  Sex: Female

DRUGS (1)
  1. REBIF [Suspect]
     Indication: MULTIPLE SCLEROSIS
     Route: 058
     Dates: start: 2001, end: 20131219

REACTIONS (7)
  - Respiratory failure [Fatal]
  - Cardiac failure congestive [Fatal]
  - Multi-organ failure [Fatal]
  - Pneumonia [Fatal]
  - Gastrointestinal infection [Fatal]
  - Multiple sclerosis [Fatal]
  - Urinary tract infection [Not Recovered/Not Resolved]
